FAERS Safety Report 6652033-2 (Version None)
Quarter: 2010Q1

REPORT INFORMATION
  Report Type: 
  Country: None (occurrence: None)
  Receive Date: 20100323
  Receipt Date: 20100310
  Transmission Date: 20100710
  Serious: Yes (Other)
  Sender: FDA-Public Use
  Company Number: 008886

PATIENT
  Sex: Female
  Weight: 64 kg

DRUGS (9)
  1. CERTOLIZUMAB PEGOL )INVESTIGATIONAL DRUG) [Suspect]
     Indication: RHEUMATOID ARTHRITIS
     Dosage: (400 MG 1X/2 WEEKS, CDP870 SUBCUTANEOUS), (200 MG 1X/2 WEEKS SUBCUTANEOUS)
     Route: 058
     Dates: start: 20060118, end: 20060706
  2. CERTOLIZUMAB PEGOL )INVESTIGATIONAL DRUG) [Suspect]
     Indication: RHEUMATOID ARTHRITIS
     Dosage: (400 MG 1X/2 WEEKS, CDP870 SUBCUTANEOUS), (200 MG 1X/2 WEEKS SUBCUTANEOUS)
     Route: 058
     Dates: start: 20060706, end: 20091229
  3. METHOTREXATE [Concomitant]
  4. ALENDRONAT RATIOPHARM [Concomitant]
  5. ALFADIOL [Concomitant]
  6. CALCIUM [Concomitant]
  7. INHIBACE /00845401/ [Concomitant]
  8. FOLIC ACID [Concomitant]
  9. POLPRAZOL [Concomitant]

REACTIONS (6)
  - COUGH [None]
  - IRON DEFICIENCY ANAEMIA [None]
  - LUNG NEOPLASM MALIGNANT [None]
  - PNEUMONIA PRIMARY ATYPICAL [None]
  - PULMONARY FIBROSIS [None]
  - TUBERCULOSIS [None]
